FAERS Safety Report 9737224 (Version 4)
Quarter: 2014Q2

REPORT INFORMATION
  Report Type: Report from Study
  Country: JP (occurrence: JP)
  Receive Date: 20131206
  Receipt Date: 20140528
  Transmission Date: 20141212
  Serious: Yes (Life-Threatening)
  Sender: FDA-Public Use
  Company Number: JP-ABBVIE-13P-087-1175851-00

PATIENT
  Age: 35 Year
  Sex: Male
  Weight: 55.2 kg

DRUGS (8)
  1. HUMIRA [Suspect]
     Indication: BEHCET^S SYNDROME
     Route: 058
     Dates: start: 20131107, end: 20131107
  2. HUMIRA [Suspect]
     Dates: start: 20131121, end: 20131121
  3. AZATHIOPRINE [Concomitant]
     Indication: BEHCET^S SYNDROME
     Route: 048
     Dates: start: 20131121, end: 20131125
  4. AZATHIOPRINE [Concomitant]
     Dates: start: 20131126, end: 20131129
  5. MESALAZINE [Concomitant]
     Indication: BEHCET^S SYNDROME
     Route: 048
     Dates: start: 20131127, end: 20131129
  6. PREDNISOLONE [Concomitant]
     Indication: BEHCET^S SYNDROME
     Route: 048
     Dates: start: 20131018, end: 20131114
  7. PREDNISOLONE [Concomitant]
     Dates: start: 20131115, end: 20131126
  8. PREDNISOLONE [Concomitant]
     Dates: start: 20131127

REACTIONS (3)
  - Intestinal perforation [Recovered/Resolved with Sequelae]
  - Abdominal pain [Recovered/Resolved]
  - Cytomegalovirus infection [Unknown]
